FAERS Safety Report 23014791 (Version 1)
Quarter: 2023Q4

REPORT INFORMATION
  Report Type: Spontaneous
  Country: CN (occurrence: CN)
  Receive Date: 20231002
  Receipt Date: 20231002
  Transmission Date: 20240110
  Serious: Yes (Hospitalization)
  Sender: FDA-Public Use
  Company Number: CN-ROCHE-3197815

PATIENT
  Age: 59 Year
  Sex: Male
  Weight: 54.5 kg

DRUGS (8)
  1. CAPECITABINE [Suspect]
     Active Substance: CAPECITABINE
     Indication: Metastatic gastric cancer
     Dosage: DOSE LAST STUDY DRUG ADMIN PRIOR AE IS 2000 MG. START DATE OF MOST RECENT DOSE OF STUDY DRUG PRIO...
     Route: 048
     Dates: start: 20220726
  2. ATEZOLIZUMAB [Suspect]
     Active Substance: ATEZOLIZUMAB
     Indication: Metastatic gastric cancer
     Dosage: DOSE LAST STUDY DRUG ADMIN PRIOR AE IS 1200 MG. START DATE OF MOST RECENT DOSE OF STUDY DRUG PRIO...
     Route: 042
     Dates: start: 20220726
  3. OXALIPLATIN [Suspect]
     Active Substance: OXALIPLATIN
     Indication: Metastatic gastric cancer
     Dosage: DOSE LAST STUDY DRUG ADMIN PRIOR AE IS 200 MG. START DATE OF MOST RECENT DOSE OF STUDY DRUG PRIOR...
     Route: 042
     Dates: start: 20220726
  4. CELEBREX [Concomitant]
     Active Substance: CELECOXIB
     Indication: Abdominal pain
     Dosage: GIVEN FOR PROPHYLAXIS.
     Dates: start: 20220726
  5. ONDANSETRON HYDROCHLORIDE [Concomitant]
     Active Substance: ONDANSETRON HYDROCHLORIDE
     Route: 048
     Dates: start: 20220907, end: 20221003
  6. OMEPRAZOLE SODIUM [Concomitant]
     Active Substance: OMEPRAZOLE SODIUM
     Dates: start: 20220928, end: 20220928
  7. AZASETRON HYDROCHLORIDE AND SODIUM CHLORIDE [Concomitant]
     Dates: start: 20220928, end: 20220928
  8. OMEPRAZOLE [Concomitant]
     Active Substance: OMEPRAZOLE
     Dates: start: 20220908, end: 20220921

REACTIONS (1)
  - Haemoptysis [Recovered/Resolved]

NARRATIVE: CASE EVENT DATE: 20221010
